FAERS Safety Report 23240698 (Version 1)
Quarter: 2023Q4

REPORT INFORMATION
  Report Type: Spontaneous
  Country: US (occurrence: None)
  Receive Date: 20231129
  Receipt Date: 20231129
  Transmission Date: 20240109
  Serious: Yes (Life-Threatening, Hospitalization, Other)
  Sender: FDA-Public Use
  Company Number: 2023A268956

PATIENT
  Sex: Male

DRUGS (12)
  1. CRESTOR [Suspect]
     Active Substance: ROSUVASTATIN CALCIUM
     Indication: Hyperlipidaemia
     Route: 048
     Dates: start: 2021
  2. METOPROLOL [Suspect]
     Active Substance: METOPROLOL
     Route: 048
     Dates: start: 2015
  3. TOPROL XL [Suspect]
     Active Substance: METOPROLOL SUCCINATE
     Route: 048
  4. MAGROLIMAB [Suspect]
     Active Substance: MAGROLIMAB
     Indication: Acute myeloid leukaemia
     Dosage: 71.0MG UNKNOWN
     Route: 042
     Dates: start: 20230524, end: 20230724
  5. AZACITIDINE [Suspect]
     Active Substance: AZACITIDINE
     Indication: Acute myeloid leukaemia
     Route: 042
     Dates: start: 20230524, end: 20230818
  6. OXYCODONE [Suspect]
     Active Substance: OXYCODONE
  7. VENETOCLAX [Suspect]
     Active Substance: VENETOCLAX
     Indication: Acute myeloid leukaemia
     Route: 048
     Dates: start: 20230524
  8. DIFLUCAN [Suspect]
     Active Substance: FLUCONAZOLE
  9. SINGULAIR [Suspect]
     Active Substance: MONTELUKAST SODIUM
  10. LORAZEPAM [Suspect]
     Active Substance: LORAZEPAM
  11. VALTREX [Suspect]
     Active Substance: VALACYCLOVIR HYDROCHLORIDE
  12. LEVOFLOXACIN [Suspect]
     Active Substance: LEVOFLOXACIN

REACTIONS (6)
  - Pneumothorax [Not Recovered/Not Resolved]
  - Fall [Not Recovered/Not Resolved]
  - Cardiac arrest [Unknown]
  - Generalised tonic-clonic seizure [Unknown]
  - Respiratory distress [Unknown]
  - Bradypnoea [Unknown]

NARRATIVE: CASE EVENT DATE: 20230820
